FAERS Safety Report 7631203-0 (Version None)
Quarter: 2011Q3

REPORT INFORMATION
  Report Type: 
  Country: None (occurrence: None)
  Receive Date: 20110725
  Receipt Date: 20110715
  Transmission Date: 20111222
  Serious: No
  Sender: FDA-Public Use
  Company Number: US-JNJFOC-20110707307

PATIENT
  Sex: Male

DRUGS (3)
  1. DIOVAN [Concomitant]
     Route: 048
  2. INVEGA SUSTENNA [Suspect]
     Indication: PRODUCT USED FOR UNKNOWN INDICATION
     Dosage: ONCE IN A MONTH
     Route: 030
     Dates: start: 20101001
  3. METFORMIN [Concomitant]
     Route: 048

REACTIONS (3)
  - DRUG DOSE OMISSION [None]
  - SYRINGE ISSUE [None]
  - PRODUCT QUALITY ISSUE [None]
